FAERS Safety Report 5907879-2 (Version None)
Quarter: 2008Q4

REPORT INFORMATION
  Report Type: 
  Country: None (occurrence: None)
  Receive Date: 20081003
  Receipt Date: 20080922
  Transmission Date: 20090506
  Serious: Yes (Hospitalization)
  Sender: FDA-Public Use
  Company Number: AU-PFIZER INC-2008074608

PATIENT
  Age: 45 Year
  Sex: Female
  Weight: 75 kg

DRUGS (7)
  1. ZELDOX (CAPSULES) [Suspect]
     Indication: SCHIZOAFFECTIVE DISORDER
     Route: 048
     Dates: start: 20080603, end: 20080611
  2. PHENELZINE [Suspect]
     Indication: DEPRESSION
     Route: 048
  3. LAMOTRIGINE [Concomitant]
     Route: 048
     Dates: start: 20050101, end: 20080612
  4. LITHIUM [Concomitant]
     Route: 048
     Dates: end: 20080612
  5. QUETIAPINE FUMARATE [Concomitant]
     Route: 048
  6. INDAPAMIDE [Concomitant]
     Route: 048
  7. ORAL CONTRACEPTIVE NOS [Concomitant]
     Route: 048

REACTIONS (3)
  - DEPRESSION [None]
  - GENERAL PHYSICAL HEALTH DETERIORATION [None]
  - SEROTONIN SYNDROME [None]
